FAERS Safety Report 7658905-4 (Version None)
Quarter: 2011Q3

REPORT INFORMATION
  Report Type: 
  Country: None (occurrence: None)
  Receive Date: 20110802
  Receipt Date: 20110727
  Transmission Date: 20111222
  Serious: Yes (Death, Hospitalization, Other)
  Sender: FDA-Public Use
  Company Number: 2010001452

PATIENT
  Age: 65 Year
  Sex: Male
  Weight: 60 kg

DRUGS (2)
  1. ERLOTINIB HYDROCHLORIDE [Suspect]
     Indication: NON-SMALL CELL LUNG CANCER
     Dosage: 150 MG, UID/QD, ORAL
     Route: 048
     Dates: start: 20100305, end: 20100309
  2. PAZOPANIB/PLACEBO (PAZOPANIB/PLACEBO) [Suspect]
     Indication: NON-SMALL CELL LUNG CANCER
     Dosage: 600 MG, UID/QD, ORAL
     Route: 048
     Dates: start: 20100305, end: 20100309

REACTIONS (7)
  - ASTHENIA [None]
  - HYPOPHAGIA [None]
  - DEHYDRATION [None]
  - PNEUMONIA [None]
  - ABDOMINAL TENDERNESS [None]
  - ANAEMIA [None]
  - MENTAL STATUS CHANGES [None]
